FAERS Safety Report 4882919-0 (Version None)
Quarter: 2005Q4

REPORT INFORMATION
  Report Type: 
  Country: None (occurrence: None)
  Receive Date: 20051201
  Receipt Date: 20050914
  Transmission Date: 20060501
  Serious: No
  Sender: FDA-Public Use
  Company Number: 2005PV002464

PATIENT
  Age: 73 Year
  Sex: Female
  Weight: 72.5755 kg

DRUGS (10)
  1. BYETTA [Suspect]
     Indication: DIABETES MELLITUS NON-INSULIN-DEPENDENT
     Dosage: 5 MCG;BID;SC
     Route: 058
     Dates: start: 20050913
  2. GLUCOVANCE [Concomitant]
  3. AVANDIA [Concomitant]
  4. PRECOSE [Concomitant]
  5. LIPITOR [Concomitant]
  6. SYNTHROID [Concomitant]
  7. POTASSIUM [Concomitant]
  8. LASIX [Concomitant]
  9. ZAROXOLYN [Concomitant]
  10. ASPIRIN [Concomitant]

REACTIONS (6)
  - BLOOD GLUCOSE DECREASED [None]
  - FEELING JITTERY [None]
  - INJECTION SITE HAEMORRHAGE [None]
  - NAUSEA [None]
  - PRURITUS [None]
  - VOMITING [None]
